FAERS Safety Report 7077270-7 (Version None)
Quarter: 2010Q4

REPORT INFORMATION
  Report Type: 
  Country: None (occurrence: None)
  Receive Date: 20101101
  Receipt Date: 20101022
  Transmission Date: 20110411
  Serious: Yes (Other)
  Sender: FDA-Public Use
  Company Number: JP-ROCHE-737177

PATIENT

DRUGS (1)
  1. TAMIFLU [Suspect]
     Dosage: DOSE FORM: UNCERTAINTY, DOSAGE WAS UNCERTAIN
     Route: 048

REACTIONS (1)
  - LOSS OF CONSCIOUSNESS [None]
